FAERS Safety Report 5968633-9 (Version None)
Quarter: 2008Q4

REPORT INFORMATION
  Report Type: 
  Country: None (occurrence: None)
  Receive Date: 20081126
  Receipt Date: 20081120
  Transmission Date: 20090506
  Serious: Yes (Death)
  Sender: FDA-Public Use
  Company Number: IN-GENENTECH-272155

PATIENT
  Age: 80 Year
  Sex: Female

DRUGS (1)
  1. ACTIVASE [Suspect]
     Indication: ISCHAEMIC STROKE
     Dosage: 20 MG, UNK
     Route: 042
     Dates: start: 20081114, end: 20081114

REACTIONS (1)
  - DEATH [None]
